FAERS Safety Report 23664894 (Version 1)
Quarter: 2024Q1

REPORT INFORMATION
  Report Type: Spontaneous
  Country: FR (occurrence: FR)
  Receive Date: 20240322
  Receipt Date: 20240322
  Transmission Date: 20240410
  Serious: Yes (Other)
  Sender: FDA-Public Use
  Company Number: FR-PFIZER INC-202400038172

PATIENT
  Age: 78 Year
  Sex: Female
  Weight: 50 kg

DRUGS (10)
  1. NOVATREX (METHOTREXATE) [Suspect]
     Active Substance: METHOTREXATE SODIUM
     Indication: Rheumatoid arthritis
     Dosage: 10 MG, WEEKLY
     Route: 048
     Dates: start: 201805
  2. NOVATREX (METHOTREXATE) [Suspect]
     Active Substance: METHOTREXATE SODIUM
     Indication: Polyarthritis
     Dosage: 10 MG, WEEKLY (4 TABLETS OF 2.5MG, EACH SATURDAY)
     Dates: start: 20240209
  3. CORTISONE [Suspect]
     Active Substance: CORTISONE
     Indication: Polyarthritis
     Dosage: UNK
     Dates: start: 201805
  4. PREDNISONE [Concomitant]
     Active Substance: PREDNISONE
     Dosage: 2 MG
     Dates: start: 201805
  5. FOLIC ACID [Concomitant]
     Active Substance: FOLIC ACID
     Dosage: 10 MG, WEEKLY (2X5MG 1 TIME/WEEK)
     Dates: start: 201805
  6. CHOLECALCIFEROL [Concomitant]
     Active Substance: CHOLECALCIFEROL
     Dosage: 50000 IU, MONTHLY
     Dates: start: 201805
  7. IRBESARTAN [Concomitant]
     Active Substance: IRBESARTAN
     Dosage: 150 MG
     Dates: start: 201805
  8. ELIQUIS [Concomitant]
     Active Substance: APIXABAN
     Dosage: UNK (2X2.5MG)
     Dates: start: 201805
  9. BISOPROLOL [Concomitant]
     Active Substance: BISOPROLOL\BISOPROLOL FUMARATE
     Dosage: 1.25 MG
     Dates: start: 201805
  10. RABEPRAZOLE [Concomitant]
     Active Substance: RABEPRAZOLE
     Dosage: UNK (10)
     Dates: start: 201805

REACTIONS (10)
  - Ischaemic stroke [Unknown]
  - Herpes zoster [Unknown]
  - Nodule [Unknown]
  - Paraesthesia [Unknown]
  - Visual field defect [Unknown]
  - Iron deficiency anaemia [Unknown]
  - Functional gastrointestinal disorder [Unknown]
  - Gastrointestinal disorder [Unknown]
  - Fatigue [Unknown]
  - Product administration error [Unknown]

NARRATIVE: CASE EVENT DATE: 20200101
